FAERS Safety Report 12504554 (Version 5)
Quarter: 2016Q3

REPORT INFORMATION
  Report Type: Spontaneous
  Country: IT (occurrence: IT)
  Receive Date: 20160628
  Receipt Date: 20160825
  Transmission Date: 20161109
  Serious: Yes (Hospitalization)
  Sender: FDA-Public Use
  Company Number: IT-JNJFOC-20160619464

PATIENT
  Age: 70 Year
  Sex: Female

DRUGS (2)
  1. YONDELIS [Suspect]
     Active Substance: TRABECTEDIN
     Indication: OVARIAN CANCER RECURRENT
     Dosage: ONE POSOLOGIC UNIT AND WITH TOTAL FREQUENCY. CYCLE 1
     Route: 042
     Dates: start: 20160324, end: 20160324
  2. CAELYX [Suspect]
     Active Substance: DOXORUBICIN HYDROCHLORIDE
     Indication: OVARIAN CANCER RECURRENT
     Dosage: ONE POSOLOGIC UNIT AND WITH TOTAL FREQUENCY. CYCLE 1
     Route: 042
     Dates: start: 20160324, end: 20160324

REACTIONS (3)
  - Lung infection [Recovered/Resolved]
  - Febrile neutropenia [Recovered/Resolved]
  - Carbohydrate antigen 125 increased [Recovered/Resolved]

NARRATIVE: CASE EVENT DATE: 20160331
